FAERS Safety Report 6297332-1 (Version None)
Quarter: 2009Q3

REPORT INFORMATION
  Report Type: 
  Country: None (occurrence: None)
  Receive Date: 20090804
  Receipt Date: 20090804
  Transmission Date: 20100115
  Serious: No
  Sender: FDA-Public Use
  Company Number: None

PATIENT
  Age: 23 Year
  Sex: Female
  Weight: 106.5953 kg

DRUGS (2)
  1. OXYCODONE AND ACETAMINOPHEN [Suspect]
     Indication: HAEMATOMA
     Dosage: GENERIC OXYCODONE EVERY 6 HRS
     Dates: start: 20090705, end: 20090714
  2. IBUPROFEN TABLETS [Suspect]
     Dosage: IBUPROFEN EVERY 8 HRS
     Dates: start: 20090705

REACTIONS (3)
  - CONTUSION [None]
  - PRURITUS [None]
  - RASH [None]
